FAERS Safety Report 25189450 (Version 2)
Quarter: 2025Q2

REPORT INFORMATION
  Report Type: Report from Study
  Country: CA (occurrence: CA)
  Receive Date: 20250411
  Receipt Date: 20250619
  Transmission Date: 20250717
  Serious: Yes (Hospitalization, Other)
  Sender: TEVA
  Company Number: CA-TEVA-VS-3306440

PATIENT
  Age: 62 Year
  Sex: Female

DRUGS (3)
  1. AJOVY [Suspect]
     Active Substance: FREMANEZUMAB-VFRM
     Indication: Migraine prophylaxis
     Dosage: DOSAGE: 225 MG/G LAST DOSE ADMINISTERED DATE 2025-04-03?STRENGTH: 225 MG/1.5 ML
     Route: 058
     Dates: start: 20250131
  2. PROPRANOLOL [Concomitant]
     Active Substance: PROPRANOLOL HYDROCHLORIDE
     Indication: Product used for unknown indication
  3. GABAPENTIN [Concomitant]
     Active Substance: GABAPENTIN
     Indication: Product used for unknown indication

REACTIONS (16)
  - Hospitalisation [Unknown]
  - Immediate post-injection reaction [Unknown]
  - Injection site pain [Recovered/Resolved]
  - Injection site pruritus [Recovering/Resolving]
  - Cognitive disorder [Recovering/Resolving]
  - Burning sensation [Recovering/Resolving]
  - Pneumonia [Recovering/Resolving]
  - Injection site swelling [Recovering/Resolving]
  - Arthritis [Recovering/Resolving]
  - Hypoaesthesia [Recovering/Resolving]
  - Concussion [Recovering/Resolving]
  - Injection site erythema [Not Recovered/Not Resolved]
  - Anxiety [Recovering/Resolving]
  - Inappropriate schedule of product administration [Unknown]
  - Device difficult to use [Unknown]
  - Injection site warmth [Unknown]

NARRATIVE: CASE EVENT DATE: 20250101
